FAERS Safety Report 9613593 (Version 1)
Quarter: 2013Q4

REPORT INFORMATION
  Report Type: Spontaneous
  Country: US (occurrence: US)
  Receive Date: 20131010
  Receipt Date: 20131010
  Transmission Date: 20140711
  Serious: Yes (Other)
  Sender: FDA-Public Use
  Company Number: US-PFIZER INC-2013286615

PATIENT
  Age: 49 Year
  Sex: Female
  Weight: 117.91 kg

DRUGS (8)
  1. XELJANZ [Suspect]
     Indication: RHEUMATOID ARTHRITIS
     Dosage: 5 MG, 2X/DAY
     Route: 048
     Dates: start: 201303, end: 20131002
  2. LIPITOR [Suspect]
     Indication: BLOOD CHOLESTEROL INCREASED
     Dosage: 40 MG, 1X/DAY
     Route: 048
     Dates: start: 2013
  3. METHOTREXATE [Concomitant]
     Dosage: 2.5 MG, 10 TABLETS IN A WEEK
     Dates: end: 201309
  4. LOPRESSOR ER [Concomitant]
     Dosage: 100 MG, 1X/DAY
  5. HYDROCHLOROTHIAZIDE [Concomitant]
     Dosage: 25 MG, 1X/DAY
  6. LORTAB [Concomitant]
     Dosage: 7.5 MG, AS NEEDED
  7. FOLIC ACID [Concomitant]
     Dosage: 2 MG (1MG TWO TABLETS), 2X/DAY
  8. ESTRACE [Concomitant]
     Dosage: 1 MG, 1X/DAY

REACTIONS (4)
  - Haemorrhage [Unknown]
  - Blood cholesterol increased [Unknown]
  - Bunion [Unknown]
  - Laceration [Unknown]
